FAERS Safety Report 8649008 (Version 2)
Quarter: 2012Q4

REPORT INFORMATION
  Report Type: 
  Country: US (occurrence: US)
  Receive Date: 20120704
  Receipt Date: 20121017
  Transmission Date: 20130627
  Serious: Yes (Death, Hospitalization)
  Sender: FDA-Public Use
  Company Number: PHHO2012US009808

PATIENT
  Age: 71 Year
  Sex: Male
  Weight: 71.67 kg

DRUGS (17)
  1. EVEROLIMUS [Suspect]
     Indication: SQUAMOUS CELL CARCINOMA
     Dosage: 5 mg, QD
     Route: 048
     Dates: start: 20101130
  2. CISPLATIN [Suspect]
     Indication: SQUAMOUS CELL CARCINOMA
     Dosage: 140.25 mg, Q21d
     Route: 042
     Dates: start: 20101130
  3. COMPARATOR PACLITAXEL [Suspect]
     Indication: SQUAMOUS CELL CARCINOMA
     Dosage: 327.3 mg, Q21D
     Route: 042
     Dates: start: 20101130
  4. CETUXIMAB [Suspect]
     Indication: SQUAMOUS CELL CARCINOMA
     Dosage: 467.5 mg, UNK
     Route: 042
     Dates: start: 20101207
  5. BLINDED AFINITOR [Suspect]
     Indication: SQUAMOUS CELL CARCINOMA
     Dosage: No treatment received
  6. BLINDED NO TREATMENT RECEIVED [Suspect]
     Indication: SQUAMOUS CELL CARCINOMA
     Dosage: No treatment received
  7. BLINDED PLACEBO [Suspect]
     Indication: SQUAMOUS CELL CARCINOMA
     Dosage: No treatment received
  8. ALBUTEROL [Concomitant]
  9. DEXAMETHASONE [Concomitant]
  10. ENOXAPARIN [Concomitant]
  11. NICOTINE [Concomitant]
  12. SYMBICORT [Concomitant]
  13. PROVENTIL [Concomitant]
  14. TIOTROPIUM BROMIDE [Concomitant]
  15. XALATAN [Concomitant]
  16. TRUSOPT [Concomitant]
  17. ENZYMES [Concomitant]

REACTIONS (4)
  - Cardio-respiratory arrest [Fatal]
  - Dehydration [Unknown]
  - Atrial fibrillation [Unknown]
  - Pneumonia [Unknown]
